FAERS Safety Report 24163504 (Version 2)
Quarter: 2024Q3

REPORT INFORMATION
  Report Type: Spontaneous
  Country: DE (occurrence: DE)
  Receive Date: 20240801
  Receipt Date: 20240830
  Transmission Date: 20241017
  Serious: Yes (Life-Threatening, Hospitalization, Other)
  Sender: ABBVIE
  Company Number: None

PATIENT
  Age: 57 Year
  Sex: Male
  Weight: 80 kg

DRUGS (4)
  1. RINVOQ [Suspect]
     Active Substance: UPADACITINIB
     Indication: Colitis ulcerative
     Dosage: FIRST APPLICATION
     Route: 048
     Dates: start: 202403
  2. HEPARIN [Concomitant]
     Active Substance: HEPARIN SODIUM
     Indication: Anticoagulant therapy
  3. HYDROCORTISONE [Concomitant]
     Active Substance: HYDROCORTISONE\HYDROCORTISONE ACETATE
     Indication: Colitis ulcerative
     Route: 065
  4. METHYLPREDNISOLONE [Concomitant]
     Active Substance: METHYLPREDNISOLONE
     Indication: Colitis ulcerative
     Route: 048

REACTIONS (13)
  - Pulmonary embolism [Not Recovered/Not Resolved]
  - Left ventricular hypertrophy [Unknown]
  - Palpitations [Unknown]
  - Hypertensive heart disease [Unknown]
  - Pulmonary hypertension [Unknown]
  - Dyspnoea [Recovered/Resolved]
  - Diastolic dysfunction [Unknown]
  - Angina pectoris [Unknown]
  - Computerised tomogram thorax abnormal [Unknown]
  - Dyspnoea exertional [Unknown]
  - Gastrointestinal disorder [Unknown]
  - Myocardial infarction [Unknown]
  - Dizziness [Unknown]

NARRATIVE: CASE EVENT DATE: 20240101
